FAERS Safety Report 16300704 (Version 2)
Quarter: 2019Q2

REPORT INFORMATION
  Report Type: Spontaneous
  Country: CN (occurrence: CN)
  Receive Date: 20190510
  Receipt Date: 20190521
  Transmission Date: 20190711
  Serious: Yes (Death, Hospitalization)
  Sender: FDA-Public Use
  Company Number: CN-CELGENEUS-CHN-20190410406

PATIENT
  Age: 73 Year
  Sex: Male
  Weight: 50 kg

DRUGS (11)
  1. COMPOUND CHLORHEXIDINE [Concomitant]
     Indication: INFECTION PROPHYLAXIS
     Dosage: 30 MILLILITER
     Route: 065
     Dates: start: 20190401
  2. ETAMSYLATE [Concomitant]
     Active Substance: ETHAMSYLATE
     Indication: PRODUCT USED FOR UNKNOWN INDICATION
     Route: 065
     Dates: start: 20190408, end: 20190412
  3. AZACITIDINE. [Suspect]
     Active Substance: AZACITIDINE
     Indication: ACUTE MYELOID LEUKAEMIA
     Route: 058
     Dates: start: 20190402
  4. VENETOCLAX. [Concomitant]
     Active Substance: VENETOCLAX
     Dosage: 200 MILLIGRAM
     Route: 048
     Dates: start: 20190403, end: 20190403
  5. VENETOCLAX. [Concomitant]
     Active Substance: VENETOCLAX
     Indication: ACUTE MYELOID LEUKAEMIA
     Dosage: 100 MILLIGRAM
     Route: 048
     Dates: start: 20190402, end: 20190402
  6. VENETOCLAX. [Concomitant]
     Active Substance: VENETOCLAX
     Dosage: 400 MILLIGRAM
     Route: 048
     Dates: start: 20190404, end: 20190429
  7. SODIUM BICARBONATE. [Concomitant]
     Active Substance: SODIUM BICARBONATE
     Indication: PROPHYLAXIS
     Dosage: 40 MILLILITER
     Route: 041
     Dates: start: 20190401, end: 20190408
  8. ALLOPURINOL. [Concomitant]
     Active Substance: ALLOPURINOL
     Indication: PROPHYLAXIS
     Dosage: .3 GRAM
     Route: 048
     Dates: start: 20190401, end: 20190408
  9. DEXTROSE. [Concomitant]
     Active Substance: DEXTROSE
     Indication: PROPHYLAXIS
     Route: 041
     Dates: start: 20190401, end: 20190408
  10. RECOMBINANT HUMAN THROMBOPOIETIN [Concomitant]
     Active Substance: THROMBOPOIETIN
     Indication: THROMBOCYTOPENIA
     Route: 065
     Dates: start: 20190409, end: 20190416
  11. POVIDONE-IODINE. [Concomitant]
     Active Substance: POVIDONE-IODINE
     Indication: INFECTION PROPHYLAXIS
     Dosage: 1:1000 ML
     Route: 065
     Dates: start: 20190401

REACTIONS (2)
  - Haemorrhage intracranial [Fatal]
  - Febrile neutropenia [Unknown]

NARRATIVE: CASE EVENT DATE: 20190423
